FAERS Safety Report 7032225-3 (Version None)
Quarter: 2010Q4

REPORT INFORMATION
  Report Type: 
  Country: None (occurrence: None)
  Receive Date: 20101007
  Receipt Date: 20100930
  Transmission Date: 20110411
  Serious: Yes (Other)
  Sender: FDA-Public Use
  Company Number: US-WYE-H17922910

PATIENT
  Sex: Male

DRUGS (3)
  1. TYGACIL [Suspect]
     Indication: SKIN INFECTION
     Dosage: UNKNOWN
     Route: 065
  2. TYGACIL [Suspect]
     Indication: KLEBSIELLA INFECTION
  3. TYGACIL [Suspect]
     Indication: STAPHYLOCOCCAL INFECTION

REACTIONS (2)
  - CELLULITIS [None]
  - PATHOGEN RESISTANCE [None]
